FAERS Safety Report 7425719-X (Version None)
Quarter: 2011Q2

REPORT INFORMATION
  Report Type: 
  Country: None (occurrence: None)
  Receive Date: 20110420
  Receipt Date: 20110411
  Transmission Date: 20111010
  Serious: Yes (Life-Threatening, Hospitalization, Other)
  Sender: FDA-Public Use
  Company Number: JP-BRISTOL-MYERS SQUIBB COMPANY-15592066

PATIENT
  Age: 87 Year
  Sex: Male

DRUGS (12)
  1. AMLODIPINE [Concomitant]
     Indication: HYPERTENSION
     Route: 048
  2. LASIX [Concomitant]
     Indication: HYPERTENSION
     Route: 048
  3. SIGMART [Concomitant]
     Indication: HYPERTENSION
     Route: 048
  4. ASPENON [Suspect]
     Indication: ATRIAL FIBRILLATION
     Dosage: CAPSULE
     Route: 048
     Dates: end: 20100812
  5. LIPITOR [Concomitant]
     Indication: HYPERLIPIDAEMIA
     Dosage: TABS
  6. CIBENOL TABS [Suspect]
     Indication: ATRIAL FIBRILLATION
     Route: 048
     Dates: end: 20100812
  7. WARFARIN SODIUM [Suspect]
     Indication: ATRIAL FIBRILLATION
     Dosage: TABS
     Route: 048
     Dates: end: 20100812
  8. GASTER [Concomitant]
     Indication: GASTRIC ULCER
     Dosage: ORODISPERSIBLE CR TABS
     Route: 048
  9. DIOVAN [Concomitant]
     Indication: HYPERTENSION
     Dosage: TAB
     Route: 048
  10. PLAVIX [Suspect]
     Indication: ATRIAL FIBRILLATION
     Dosage: UID
     Route: 048
     Dates: end: 20100812
  11. MAGLAX [Concomitant]
     Indication: CONSTIPATION
     Dosage: FINE GRANULES
  12. ARICEPT [Concomitant]
     Indication: DEMENTIA
     Dosage: ORODISPERSIBLE CR TABS
     Route: 048

REACTIONS (7)
  - LIVER DISORDER [None]
  - VENTRICULAR TACHYCARDIA [None]
  - ANAEMIA [None]
  - DEMENTIA [None]
  - RENAL IMPAIRMENT [None]
  - HYPERTENSION [None]
  - GASTROINTESTINAL HAEMORRHAGE [None]
